FAERS Safety Report 5099303-X (Version None)
Quarter: 2006Q3

REPORT INFORMATION
  Report Type: 
  Country: None (occurrence: None)
  Receive Date: 20060728
  Receipt Date: 20060413
  Transmission Date: 20061208
  Serious: No
  Sender: FDA-Public Use
  Company Number: COT_0515_2006

PATIENT
  Age: 55 Year
  Sex: Female
  Weight: 77.1115 kg

DRUGS (18)
  1. VENTAVIS [Suspect]
     Indication: PULMONARY HYPERTENSION
     Dosage: 5 MCG 5XD IH
     Dates: start: 20060329, end: 20060410
  2. VENTAVIS [Suspect]
     Indication: PULMONARY HYPERTENSION
     Dosage: 5 MCG 3X/DAY IH
     Dates: start: 20060410
  3. TRACLEER [Concomitant]
  4. LASIX [Concomitant]
  5. LEXAPRO [Concomitant]
  6. ZETIA [Concomitant]
  7. DIGOXIN [Concomitant]
  8. COREG [Concomitant]
  9. LUNESTA [Concomitant]
  10. MULTIVITAMIN [Concomitant]
  11. NITROGLYCERIN [Concomitant]
  12. POTASSIUM [Concomitant]
  13. ALLOPURINOL [Concomitant]
  14. NASONEX [Concomitant]
  15. VITAMIN E [Concomitant]
  16. COMBIVENT [Concomitant]
  17. RELPAX [Concomitant]
  18. ASPIRIN [Concomitant]

REACTIONS (4)
  - ANOREXIA [None]
  - INSOMNIA [None]
  - NAUSEA [None]
  - PARAESTHESIA [None]
